FAERS Safety Report 9874365 (Version 2)
Quarter: 2014Q1

REPORT INFORMATION
  Report Type: Spontaneous
  Country: US (occurrence: US)
  Receive Date: 20140206
  Receipt Date: 20140206
  Transmission Date: 20141002
  Serious: No
  Sender: FDA-Public Use
  Company Number: US-ACORDA-ACO_31451_2012

PATIENT
  Age: 53 Year
  Sex: Female
  Weight: 83.9 kg

DRUGS (5)
  1. AMPYRA [Suspect]
     Indication: MULTIPLE SCLEROSIS
     Dosage: 10 MG, BID
     Route: 048
     Dates: start: 201206, end: 20120731
  2. AMPYRA [Suspect]
     Dosage: 10 MG, QD
     Route: 048
     Dates: start: 20120801
  3. AMPYRA [Suspect]
     Dosage: 10 MG, Q 12 HRS
     Dates: start: 20130222
  4. COPAXONE [Concomitant]
     Indication: PRODUCT USED FOR UNKNOWN INDICATION
     Dosage: UNK
  5. VITAMIN B12                        /00056201/ [Concomitant]
     Indication: PRODUCT USED FOR UNKNOWN INDICATION
     Dosage: UNK

REACTIONS (4)
  - Anxiety [Recovered/Resolved]
  - Dizziness [Not Recovered/Not Resolved]
  - Inappropriate schedule of drug administration [Unknown]
  - Headache [Unknown]
